FAERS Safety Report 12269836 (Version 2)
Quarter: 2016Q2

REPORT INFORMATION
  Report Type: Report from Study
  Country: US (occurrence: US)
  Receive Date: 20160415
  Receipt Date: 20160504
  Transmission Date: 20160815
  Serious: No
  Sender: FDA-Public Use
  Company Number: US-AMGEN-USASP2016047586

PATIENT
  Age: 45 Year
  Sex: Female

DRUGS (6)
  1. MAGNESIUM [Concomitant]
     Active Substance: MAGNESIUM
     Dosage: UNK
  2. ENBREL [Suspect]
     Active Substance: ETANERCEPT
     Indication: PSORIASIS
     Dosage: 50 MG, 2 TIMES/WK
     Route: 058
     Dates: start: 201601
  3. LOVASTATIN. [Concomitant]
     Active Substance: LOVASTATIN
     Dosage: UNK
  4. VITAMIN B12 [Concomitant]
     Active Substance: CYANOCOBALAMIN
     Dosage: UNK
  5. METFORMIN [Concomitant]
     Active Substance: METFORMIN HYDROCHLORIDE
     Dosage: UNK
  6. VITAMIN D                          /00107901/ [Concomitant]
     Active Substance: ERGOCALCIFEROL
     Dosage: UNK

REACTIONS (1)
  - Drug ineffective [Unknown]

NARRATIVE: CASE EVENT DATE: 2016
